FAERS Safety Report 6696418-7 (Version None)
Quarter: 2010Q2

REPORT INFORMATION
  Report Type: 
  Country: None (occurrence: None)
  Receive Date: 20100421
  Receipt Date: 20100211
  Transmission Date: 20101027
  Serious: No
  Sender: FDA-Public Use
  Company Number: PR-000025

PATIENT
  Sex: Male
  Weight: 10.8863 kg

DRUGS (2)
  1. KUVAN [Suspect]
     Indication: PHENYLKETONURIA
     Dosage: (100 MG QD ORAL)
     Route: 048
     Dates: start: 20091001, end: 20100205
  2. NUTRIENTS WITHOUT PHENYLALANINE [Concomitant]

REACTIONS (5)
  - BLOOD IMMUNOGLOBULIN E [None]
  - EOSINOPHIL COUNT [None]
  - HYPERSENSITIVITY [None]
  - PRURITUS [None]
  - RASH MACULO-PAPULAR [None]
